FAERS Safety Report 9769687 (Version 1)
Quarter: 2013Q4

REPORT INFORMATION
  Report Type: Spontaneous
  Country: US (occurrence: None)
  Receive Date: 20131217
  Receipt Date: 20131217
  Transmission Date: 20140711
  Serious: No
  Sender: FDA-Public Use
  Company Number: None

PATIENT
  Age: 41 Year
  Sex: Female

DRUGS (2)
  1. TRICHLOROACETIC ACID [Suspect]
     Indication: ACNE
     Route: 061
  2. TRICHLOROACETIC ACID [Suspect]
     Indication: PIGMENTATION DISORDER
     Route: 061

REACTIONS (2)
  - Skin hypopigmentation [None]
  - Skin hyperpigmentation [None]
